FAERS Safety Report 18123101 (Version 1)
Quarter: 2020Q3

REPORT INFORMATION
  Report Type: Report from Study
  Country: US (occurrence: US)
  Receive Date: 20200807
  Receipt Date: 20200807
  Transmission Date: 20201103
  Serious: Yes (Death, Hospitalization, Disabling)
  Sender: FDA-Public Use
  Company Number: US-EMD SERONO-E2B_90046359

PATIENT
  Age: 73 Year
  Sex: Female

DRUGS (1)
  1. REBIF [Suspect]
     Active Substance: INTERFERON BETA-1A
     Indication: MULTIPLE SCLEROSIS
     Route: 058
     Dates: start: 20091009

REACTIONS (11)
  - Erythema [Recovering/Resolving]
  - Sinusitis [Recovering/Resolving]
  - Muscle contracture [Not Recovered/Not Resolved]
  - Immobile [Fatal]
  - Tremor [Not Recovered/Not Resolved]
  - Arthritis [Unknown]
  - Death [Fatal]
  - Urinary tract infection [Fatal]
  - Aphasia [Not Recovered/Not Resolved]
  - Respiratory disorder [Fatal]
  - Blood glucose increased [Fatal]

NARRATIVE: CASE EVENT DATE: 2020
